FAERS Safety Report 8488378-3 (Version None)
Quarter: 2012Q3

REPORT INFORMATION
  Report Type: 
  Country: None (occurrence: None)
  Receive Date: 20120705
  Receipt Date: 20120627
  Transmission Date: 20120928
  Serious: Yes (Hospitalization)
  Sender: FDA-Public Use
  Company Number: US-BAYER-2011-105766

PATIENT
  Age: 27 Year
  Sex: Female
  Weight: 88.435 kg

DRUGS (8)
  1. MAGNESIUM HYDROXIDE TAB [Concomitant]
     Dosage: UNK
     Dates: start: 20081001
  2. NEXIUM [Concomitant]
     Dosage: UNK
     Dates: start: 20081001
  3. VITAMIN TAB [Concomitant]
     Dosage: UNK
     Route: 048
     Dates: start: 20081001
  4. CARAFATE [Concomitant]
     Dosage: UNK
     Route: 048
     Dates: start: 20081001
  5. KETOROLAC TROMETHAMINE [Concomitant]
     Dosage: UNK UNK, PRN
     Dates: start: 20081001
  6. HYDROCODONE BITARTRATE [Concomitant]
     Dosage: UNK
     Route: 048
     Dates: start: 20081001
  7. YAZ [Suspect]
     Dosage: UNK
     Dates: start: 20080201, end: 20090101
  8. BELLADONNA W/ERGOTAMINE/PHENOBARBITAL [Concomitant]
     Dosage: UNK
     Dates: start: 20081001

REACTIONS (8)
  - DECREASED APPETITE [None]
  - FEAR [None]
  - MALAISE [None]
  - PAIN [None]
  - CHOLECYSTITIS CHRONIC [None]
  - GALLBLADDER INJURY [None]
  - INJURY [None]
  - FATIGUE [None]
